FAERS Safety Report 13663388 (Version 1)
Quarter: 2017Q2

REPORT INFORMATION
  Report Type: Spontaneous
  Country: US (occurrence: US)
  Receive Date: 20170617
  Receipt Date: 20170617
  Transmission Date: 20170830
  Serious: Yes (Other)
  Sender: FDA-Public Use
  Company Number: None

PATIENT
  Age: 50 Year
  Sex: Female
  Weight: 63 kg

DRUGS (1)
  1. UREA CREAM [Suspect]
     Active Substance: UREA

REACTIONS (4)
  - Crystalluria [None]
  - Product deposit [None]
  - Incorrect product storage [None]
  - Pain in extremity [None]

NARRATIVE: CASE EVENT DATE: 20170315
